FAERS Safety Report 7602500-X (Version None)
Quarter: 2011Q2

REPORT INFORMATION
  Report Type: 
  Country: None (occurrence: None)
  Receive Date: 20110601
  Receipt Date: 20100604
  Transmission Date: 20111010
  Serious: Yes (Other)
  Sender: FDA-Public Use
  Company Number: 236893USA

PATIENT
  Sex: Female

DRUGS (2)
  1. SEASONIQUE [Suspect]
     Indication: ANAEMIA
     Dosage: ORAL
     Route: 048
  2. SEASONIQUE [Suspect]
     Indication: ASTHENIA
     Dosage: ORAL
     Route: 048

REACTIONS (3)
  - BLOOD DISORDER [None]
  - THROMBOSIS [None]
  - PULMONARY THROMBOSIS [None]
